FAERS Safety Report 9177817 (Version 1)
Quarter: 2012Q4

REPORT INFORMATION
  Report Type: 
  Country: US (occurrence: US)
  Receive Date: 20121012
  Receipt Date: 20121012
  Transmission Date: 20130627
  Serious: Yes (Death)
  Sender: FDA-Public Use
  Company Number: US-BIOMARINP-003110

PATIENT
  Age: 27 None
  Sex: Male
  Weight: 75 kg

DRUGS (1)
  1. KUVAN [Suspect]
     Indication: PHENYLKETONURIA
     Dates: start: 20080411

REACTIONS (1)
  - Death [Fatal]
